FAERS Safety Report 12224882 (Version 8)
Quarter: 2019Q1

REPORT INFORMATION
  Report Type: Spontaneous
  Country: US (occurrence: US)
  Receive Date: 20160331
  Receipt Date: 20190206
  Transmission Date: 20190417
  Serious: Yes (Hospitalization, Other)
  Sender: FDA-Public Use
  Company Number: US-PFIZER INC-2016177970

PATIENT
  Age: 74 Year
  Sex: Female

DRUGS (17)
  1. PREDNISONE. [Suspect]
     Active Substance: PREDNISONE
     Dosage: 5 MG, 1X/DAY
     Dates: start: 2011
  2. CARVEDILOL. [Concomitant]
     Active Substance: CARVEDILOL
     Dosage: 6.25 MG, 1X/DAY
     Dates: start: 20160715, end: 20160715
  3. SIMVASTATIN. [Concomitant]
     Active Substance: SIMVASTATIN
     Dosage: 40 MG, 1X/DAY
  4. SIMVASTATIN. [Concomitant]
     Active Substance: SIMVASTATIN
     Dosage: 20 MG, 1X/DAY
  5. PROBIOTIC [Concomitant]
     Active Substance: PROBIOTICS NOS
     Dosage: UNK UNK, DAILY
  6. PREDNISONE. [Suspect]
     Active Substance: PREDNISONE
     Dosage: 5 MG, DAILY
  7. TORSEMIDE. [Concomitant]
     Active Substance: TORSEMIDE
     Dosage: 20 MG, 1X/DAY
  8. XELJANZ [Suspect]
     Active Substance: TOFACITINIB CITRATE
     Dosage: 10 MG, 1X/DAY
     Route: 048
     Dates: start: 201601, end: 2016
  9. PREDNISONE. [Suspect]
     Active Substance: PREDNISONE
     Dosage: 4 MG, 1X/DAY
  10. COUMADIN [Concomitant]
     Active Substance: WARFARIN SODIUM
     Dosage: UNK, (AS DIRECTED)
     Dates: start: 20160701
  11. ALLEGRA [Concomitant]
     Active Substance: FEXOFENADINE HYDROCHLORIDE
     Dosage: 180 MG, 1X/DAY
     Dates: start: 20160715
  12. ELIQUIS [Concomitant]
     Active Substance: APIXABAN
     Dosage: UNK
     Dates: start: 201607
  13. VITAMIN D [Concomitant]
     Active Substance: CHOLECALCIFEROL
     Dosage: 50000 IU, UNK
  14. XELJANZ [Suspect]
     Active Substance: TOFACITINIB CITRATE
     Indication: RHEUMATOID ARTHRITIS
     Dosage: 5 MG, 2X/DAY
     Route: 048
     Dates: start: 20160115, end: 201601
  15. XELJANZ [Suspect]
     Active Substance: TOFACITINIB CITRATE
     Dosage: 5 MG, 2X/DAY
     Route: 048
     Dates: start: 201602, end: 20160706
  16. FLUMIST [Suspect]
     Active Substance: INFLUENZA A VIRUS A/CALIFORNIA/7/2009 (H1N1) LIVE(ATTENUATED) ANTIGEN\INFLUENZA A VIRUS A/PERTH/16/2009 (H3N2) LIVE(ATTENUATED) ANTIGEN\INFLUENZA B VIRUS B/BRISBANE/60/2008 LIVE(ATTENUATED) ANTIGEN
     Indication: IMMUNISATION
     Dosage: UNK
  17. PREDNISONE. [Suspect]
     Active Substance: PREDNISONE
     Indication: RHEUMATOID ARTHRITIS
     Dosage: 5 MG, DAILY
     Dates: start: 201011

REACTIONS (3)
  - Post procedural infection [Unknown]
  - Peripheral vascular disorder [Unknown]
  - Wound [Not Recovered/Not Resolved]

NARRATIVE: CASE EVENT DATE: 20151127
